FAERS Safety Report 5819465-3 (Version None)
Quarter: 2008Q3

REPORT INFORMATION
  Report Type: 
  Country: None (occurrence: None)
  Receive Date: 20080723
  Receipt Date: 20080717
  Transmission Date: 20090109
  Serious: Yes (Hospitalization)
  Sender: FDA-Public Use
  Company Number: DE-TEVA-174193ISR

PATIENT
  Sex: Female

DRUGS (1)
  1. COPAXONE [Suspect]
     Indication: MULTIPLE SCLEROSIS
     Route: 058
     Dates: start: 19980101, end: 20080701

REACTIONS (5)
  - BONE MARROW FAILURE [None]
  - ERYTHEMA INFECTIOSUM [None]
  - HYPERSENSITIVITY [None]
  - NASOPHARYNGITIS [None]
  - RHEUMATOID FACTOR INCREASED [None]
